FAERS Safety Report 7073255 (Version 15)
Quarter: 2024Q3

REPORT INFORMATION
  Report Type: Report from Study
  Country: DE (occurrence: DE)
  Receive Date: 20090805
  Receipt Date: 20240805
  Transmission Date: 20241017
  Serious: Yes (Death, Life-Threatening, Hospitalization, Other)
  Sender: MYLAN
  Company Number: DE-DCGMA-09150502

PATIENT
  Age: 68 Year
  Sex: Female
  Weight: 53 kg

DRUGS (92)
  1. OMEPRAZOLE [Suspect]
     Active Substance: OMEPRAZOLE
     Indication: Premedication
     Dosage: 1 DF, QD
     Route: 048
  2. OMEPRAZOLE [Suspect]
     Active Substance: OMEPRAZOLE
     Dosage: 40 MILLIGRAM, QD
     Route: 048
     Dates: start: 200901
  3. OMEPRAZOLE [Suspect]
     Active Substance: OMEPRAZOLE
     Dosage: 40 MILLIGRAM, BID
     Route: 048
     Dates: end: 200901
  4. OMEPRAZOLE [Suspect]
     Active Substance: OMEPRAZOLE
     Dosage: 80 MG,QD (40 MG,BID)
     Route: 048
  5. CLOZAPINE [Suspect]
     Active Substance: CLOZAPINE
     Indication: Product used for unknown indication
     Dosage: 25 MILLIGRAM, QD
     Route: 048
  6. CLOZAPINE [Suspect]
     Active Substance: CLOZAPINE
     Dosage: 0.5 DF,Q3W(25MG (0.5 TABLET AT 7+9+12+14+19 O^CLOCK)
     Route: 048
  7. CLOZAPINE [Suspect]
     Active Substance: CLOZAPINE
     Dosage: 225 MILLIGRAM, QD
     Route: 048
     Dates: start: 20090111
  8. CLOZAPINE [Suspect]
     Active Substance: CLOZAPINE
     Dosage: 62.5 MILLIGRAM, QD
     Route: 048
  9. CLOZAPINE [Suspect]
     Active Substance: CLOZAPINE
     Dosage: 12.5 MILLIGRAM, QD
     Route: 048
     Dates: start: 200901, end: 200901
  10. CLOZAPINE [Suspect]
     Active Substance: CLOZAPINE
     Dosage: 25 MILLIGRAM, 3XW
     Route: 048
  11. CLOZAPINE [Suspect]
     Active Substance: CLOZAPINE
     Dosage: 75 MILLIGRAM, QD
     Route: 048
     Dates: start: 20090111
  12. CLOZAPINE [Suspect]
     Active Substance: CLOZAPINE
     Dosage: 50 MILLIGRAM, QD (25 MG, BID)
     Route: 048
  13. CLOZAPINE [Suspect]
     Active Substance: CLOZAPINE
     Dosage: UNK
     Route: 048
  14. CARBIDOPA\LEVODOPA [Suspect]
     Active Substance: CARBIDOPA\LEVODOPA
     Indication: Product used for unknown indication
     Dosage: 200 MILLIGRAM, QD
     Route: 048
  15. CARBIDOPA\LEVODOPA [Suspect]
     Active Substance: CARBIDOPA\LEVODOPA
     Dosage: 93.75 MILLIGRAM, QD
     Route: 048
  16. CARBIDOPA\LEVODOPA [Suspect]
     Active Substance: CARBIDOPA\LEVODOPA
     Dosage: 200 MILLIGRAM, QH
     Route: 065
  17. RIVASTIGMINE [Suspect]
     Active Substance: RIVASTIGMINE
     Indication: Parkinson^s disease
     Dosage: 3 MILLIGRAM, BID
     Route: 048
     Dates: end: 200901
  18. RIVASTIGMINE [Suspect]
     Active Substance: RIVASTIGMINE
     Dosage: 6 MILLIGRAM, QD
     Route: 048
     Dates: start: 20090111
  19. RIVASTIGMINE [Suspect]
     Active Substance: RIVASTIGMINE
     Dosage: UNK UNK, QD(3-1.5-1.5 MG PER DAY),
     Route: 048
  20. RIVASTIGMINE [Suspect]
     Active Substance: RIVASTIGMINE
     Indication: Product used for unknown indication
     Dosage: UNK
     Route: 062
  21. VALPROIC ACID [Suspect]
     Active Substance: VALPROIC ACID
     Indication: Product used for unknown indication
     Dosage: 600 MILLIGRAM, QD
     Route: 048
     Dates: start: 200901
  22. VALPROIC ACID [Suspect]
     Active Substance: VALPROIC ACID
     Dosage: 300 MILLIGRAM, BID
     Route: 048
     Dates: end: 200901
  23. VALPROIC ACID [Suspect]
     Active Substance: VALPROIC ACID
     Dosage: 300 MILLIGRAM, QD
     Route: 048
     Dates: end: 200901
  24. STALEVO [Suspect]
     Active Substance: CARBIDOPA\ENTACAPONE\LEVODOPA
     Indication: Product used for unknown indication
     Dosage: 600 MILLIGRAM, QD
     Route: 048
  25. STALEVO [Suspect]
     Active Substance: CARBIDOPA\ENTACAPONE\LEVODOPA
     Dosage: 50 MILLIGRAM, TID
     Route: 048
  26. STALEVO [Suspect]
     Active Substance: CARBIDOPA\ENTACAPONE\LEVODOPA
     Dosage: 100 MG, QD (0-0-0-1)
     Route: 048
     Dates: end: 200901
  27. STALEVO [Suspect]
     Active Substance: CARBIDOPA\ENTACAPONE\LEVODOPA
     Dosage: 250 MILLIGRAM, QD
     Route: 048
     Dates: start: 20090111
  28. STALEVO [Suspect]
     Active Substance: CARBIDOPA\ENTACAPONE\LEVODOPA
     Dosage: 6 DOSAGE FORM, QD
     Route: 048
  29. STALEVO [Suspect]
     Active Substance: CARBIDOPA\ENTACAPONE\LEVODOPA
     Dosage: 100 MG, 6TIMES DAILY
     Route: 048
  30. RIVASTIGMINE [Suspect]
     Active Substance: RIVASTIGMINE
     Indication: Parkinson^s disease
     Dosage: 6 MILLIGRAM, QD (3MG, BID)
     Route: 048
  31. RIVASTIGMINE [Suspect]
     Active Substance: RIVASTIGMINE
     Dosage: 1 MILLIGRAM, QD (3-1.5-1.5 MG)
     Route: 048
  32. RIVASTIGMINE [Suspect]
     Active Substance: RIVASTIGMINE
     Dosage: 3 MILLIGRAM, BID
     Route: 065
  33. DOMPERIDONE [Suspect]
     Active Substance: DOMPERIDONE
     Indication: Premedication
     Dosage: 10 MILLIGRAM, QD
     Route: 048
  34. DOMPERIDONE [Suspect]
     Active Substance: DOMPERIDONE
     Dosage: 10 MILLIGRAM, BID
     Route: 048
     Dates: end: 200901
  35. DOMPERIDONE [Suspect]
     Active Substance: DOMPERIDONE
     Dosage: 20 MILLIGRAM, QD (10 MG, BID)
     Route: 048
  36. VALPROATE SODIUM [Suspect]
     Active Substance: VALPROATE SODIUM
     Indication: Product used for unknown indication
     Dosage: 600 MILLIGRAM, QD
     Route: 048
  37. VALPROATE SODIUM [Suspect]
     Active Substance: VALPROATE SODIUM
     Dosage: 300 MILLIGRAM, BID
     Route: 048
  38. CARBIDOPA [Suspect]
     Active Substance: CARBIDOPA
     Indication: Product used for unknown indication
     Dosage: 200 MILLIGRAM, QD
     Route: 048
  39. CARBIDOPA [Suspect]
     Active Substance: CARBIDOPA
     Dosage: 3 MILLIGRAM, BID (Q12H)
     Route: 048
  40. CARBIDOPA [Suspect]
     Active Substance: CARBIDOPA
     Dosage: 200 MILLIGRAM, QH
     Route: 048
  41. STALEVO [Suspect]
     Active Substance: CARBIDOPA\ENTACAPONE\LEVODOPA
     Indication: Product used for unknown indication
     Dosage: 6 DOSAGE FORM, QD
     Route: 048
  42. STALEVO [Suspect]
     Active Substance: CARBIDOPA\ENTACAPONE\LEVODOPA
     Dosage: 50 MG, TID (3/DAY)
     Route: 048
  43. STALEVO [Suspect]
     Active Substance: CARBIDOPA\ENTACAPONE\LEVODOPA
     Dosage: 600 MILLIGRAM, QD
     Route: 048
  44. STALEVO [Suspect]
     Active Substance: CARBIDOPA\ENTACAPONE\LEVODOPA
     Dosage: 100 MILLIGRAM, QD,6TIMES DAILY
     Route: 048
     Dates: start: 200901
  45. STALEVO [Suspect]
     Active Substance: CARBIDOPA\ENTACAPONE\LEVODOPA
     Dosage: 250 MILLIGRAM, QD
     Route: 048
     Dates: start: 20090111
  46. STALEVO [Suspect]
     Active Substance: CARBIDOPA\ENTACAPONE\LEVODOPA
     Dosage: 50 MILLIGRAM, TID
     Route: 065
  47. STALEVO [Suspect]
     Active Substance: CARBIDOPA\ENTACAPONE\LEVODOPA
     Dosage: 0-0-0-1
     Route: 048
     Dates: start: 200901
  48. STALEVO [Suspect]
     Active Substance: CARBIDOPA\ENTACAPONE\LEVODOPA
     Dosage: 6 DOSAGE FORM, QD
     Route: 048
  49. STALEVO [Suspect]
     Active Substance: CARBIDOPA\ENTACAPONE\LEVODOPA
     Dosage: 50 MILLIGRAM, QD
     Route: 065
  50. PIPAMPERONE [Suspect]
     Active Substance: PIPAMPERONE
     Indication: Premedication
     Dosage: 40 MILLIGRAM, QD
     Route: 048
  51. PIPAMPERONE [Suspect]
     Active Substance: PIPAMPERONE
     Dosage: 40 MILLIGRAM, QH
     Route: 048
  52. SINEMET [Suspect]
     Active Substance: CARBIDOPA\LEVODOPA
     Indication: Product used for unknown indication
     Dosage: 200 MG, QD
     Route: 048
  53. EXELON [Suspect]
     Active Substance: RIVASTIGMINE TARTRATE
     Indication: Parkinson^s disease
     Dosage: 6 MILLIGRAM, QD (3 MG, BID)
     Route: 048
  54. EXELON [Suspect]
     Active Substance: RIVASTIGMINE TARTRATE
     Dosage: 3 MILLIGRAM, BID
     Route: 048
  55. EXELON [Suspect]
     Active Substance: RIVASTIGMINE TARTRATE
     Dosage: 3 MILLIGRAM, QD
     Route: 048
  56. EXELON [Suspect]
     Active Substance: RIVASTIGMINE TARTRATE
     Dosage: UNK, QD (3-1.5-1.5 MG PER DAY)
     Route: 048
  57. LEVODOPA [Suspect]
     Active Substance: LEVODOPA
     Indication: Premedication
     Dosage: 93.75 MILLIGRAM, QD
     Route: 048
  58. LEVODOPA [Suspect]
     Active Substance: LEVODOPA
     Dosage: 1 MILLIGRAM, QD
     Route: 048
  59. LEVODOPA [Suspect]
     Active Substance: LEVODOPA
     Dosage: 3 MILLIGRAM, BID (Q12H)
     Route: 048
  60. LEVODOPA [Suspect]
     Active Substance: LEVODOPA
     Dosage: 600 MILLIGRAM, QD
     Route: 048
  61. LEVODOPA [Suspect]
     Active Substance: LEVODOPA
     Dosage: 200 MILLIGRAM, QD
     Route: 048
     Dates: start: 20090111
  62. LEVODOPA [Suspect]
     Active Substance: LEVODOPA
     Dosage: 250 MILLIGRAM, QD
     Route: 048
  63. CLOMETHIAZOLE [Suspect]
     Active Substance: CLOMETHIAZOLE
     Indication: Premedication
     Dosage: UNK, QD
     Route: 048
     Dates: start: 2009
  64. CLOMETHIAZOLE [Suspect]
     Active Substance: CLOMETHIAZOLE
     Dosage: 1 OT, PRN
     Route: 048
     Dates: start: 2009
  65. CLOMETHIAZOLE [Suspect]
     Active Substance: CLOMETHIAZOLE
     Dosage: 1 OT, UNK
     Route: 048
  66. CLOMETHIAZOLE [Suspect]
     Active Substance: CLOMETHIAZOLE
     Dosage: 1 OT, QD
     Route: 065
  67. CLOMETHIAZOLE [Suspect]
     Active Substance: CLOMETHIAZOLE
     Dosage: UNK, PRN, UNK UNK, QD (AS NECESSARY)
     Route: 065
  68. METOCLOPRAMIDE [Concomitant]
     Active Substance: METOCLOPRAMIDE
     Indication: Product used for unknown indication
     Dosage: UNK
     Route: 042
  69. METAMIZOLE [Concomitant]
     Active Substance: METAMIZOLE
     Indication: Product used for unknown indication
     Dosage: 20 GTT DROPS, QID
     Route: 065
  70. METAMIZOLE [Concomitant]
     Active Substance: METAMIZOLE
     Dosage: 1 DOSAGE FORM
     Route: 065
  71. METAMIZOLE [Concomitant]
     Active Substance: METAMIZOLE
     Dosage: 20 DROPS
     Route: 065
  72. METAMIZOLE [Concomitant]
     Active Substance: METAMIZOLE
     Dosage: UNK
     Route: 065
  73. METAMIZOLE [Concomitant]
     Active Substance: METAMIZOLE
     Dosage: UNK
     Route: 065
  74. TRAMADOL [Concomitant]
     Active Substance: TRAMADOL\TRAMADOL HYDROCHLORIDE
     Indication: Product used for unknown indication
     Dosage: UNK
     Route: 042
  75. TRAMADOL [Concomitant]
     Active Substance: TRAMADOL\TRAMADOL HYDROCHLORIDE
     Dosage: UNK
     Route: 042
  76. NEOSTIGMINE METHYLSULFATE [Concomitant]
     Active Substance: NEOSTIGMINE METHYLSULFATE
     Indication: Product used for unknown indication
     Dosage: UNK
     Route: 065
  77. NEOSTIGMINE METHYLSULFATE [Concomitant]
     Active Substance: NEOSTIGMINE METHYLSULFATE
     Dosage: UNK
     Route: 065
  78. CARBIDOPA\LEVODOPA [Concomitant]
     Active Substance: CARBIDOPA\LEVODOPA
     Indication: Product used for unknown indication
     Dosage: 250 MILLIGRAM, QD
     Route: 065
  79. MOVICOL [Concomitant]
     Active Substance: POLYETHYLENE GLYCOL 3350\POTASSIUM CHLORIDE\SODIUM BICARBONATE\SODIUM CHLORIDE
     Indication: Product used for unknown indication
     Dosage: 1 DF, QD (UG/L)
     Route: 065
  80. POTASSIUM CHLORIDE [Concomitant]
     Active Substance: POTASSIUM CHLORIDE
     Indication: Product used for unknown indication
     Dosage: UNK, QD
     Route: 065
  81. POTASSIUM CHLORIDE [Concomitant]
     Active Substance: POTASSIUM CHLORIDE
     Dosage: UNK
     Route: 065
  82. LACTULOSE [Concomitant]
     Active Substance: LACTULOSE
     Indication: Product used for unknown indication
     Dosage: 20 MILLILITER, QD
     Route: 065
  83. VALPROIC ACID [Concomitant]
     Active Substance: VALPROIC ACID
     Indication: Product used for unknown indication
     Dosage: 600 MILLIGRAM, QD
     Route: 065
     Dates: start: 20090111
  84. VALPROIC ACID [Concomitant]
     Active Substance: VALPROIC ACID
     Dosage: 300 MILLIGRAM, QD
     Route: 065
     Dates: start: 20090111
  85. VALPROIC ACID [Concomitant]
     Active Substance: VALPROIC ACID
     Dosage: 300 MILLIGRAM, QH
     Route: 065
  86. CARBIDOPA\LEVODOPA [Concomitant]
     Active Substance: CARBIDOPA\LEVODOPA
     Indication: Product used for unknown indication
     Dosage: 25 MG, QD (3/DAY)
     Route: 048
  87. CARBIDOPA\LEVODOPA [Concomitant]
     Active Substance: CARBIDOPA\LEVODOPA
     Dosage: 200 MILLIGRAM
     Route: 048
  88. Novalgin [Concomitant]
     Dosage: UNK
     Route: 042
  89. MERCAPTOPURINE [Concomitant]
     Active Substance: MERCAPTOPURINE
     Dosage: UNK
     Route: 042
  90. ENTACAPONE [Concomitant]
     Active Substance: ENTACAPONE
     Dosage: UNK
     Route: 065
  91. L DOPA [Concomitant]
     Active Substance: LEVODOPA
     Indication: Premedication
     Dosage: 93.75 MILLIGRAM
     Route: 065
  92. NEOSTIGMINE [Concomitant]
     Active Substance: NEOSTIGMINE
     Indication: Product used for unknown indication
     Dosage: UNK
     Route: 065

REACTIONS (15)
  - Ileus [Fatal]
  - Pancreatitis [Fatal]
  - Faecaloma [Fatal]
  - Gastrointestinal sounds abnormal [Fatal]
  - Dementia [Fatal]
  - Abdominal distension [Fatal]
  - Abdominal pain [Fatal]
  - Nausea [Fatal]
  - Vascular encephalopathy [Fatal]
  - Bladder disorder [Fatal]
  - Abdominal tenderness [Fatal]
  - White blood cell count increased [Fatal]
  - Subileus [Fatal]
  - Pancreatitis acute [Fatal]
  - Urinary retention [Fatal]

NARRATIVE: CASE EVENT DATE: 20090109
